FAERS Safety Report 9152211 (Version 1)
Quarter: 2013Q1

REPORT INFORMATION
  Report Type: Spontaneous
  Country: CM (occurrence: CM)
  Receive Date: 20130308
  Receipt Date: 20130308
  Transmission Date: 20140127
  Serious: Yes (Hospitalization)
  Sender: FDA-Public Use
  Company Number: CM-009507513-1303CMR003540

PATIENT
  Age: 58 Year
  Sex: Female

DRUGS (4)
  1. MECTIZAN [Suspect]
     Indication: ONCHOCERCIASIS
     Dosage: 3 DF, UNK
     Dates: start: 20120821
  2. MECTIZAN [Suspect]
     Indication: FILARIASIS LYMPHATIC
  3. ALBENDAZOLE [Suspect]
     Indication: ONCHOCERCIASIS
     Dosage: 1 DF, UNK
     Dates: start: 20120821
  4. ALBENDAZOLE [Suspect]
     Indication: FILARIASIS LYMPHATIC

REACTIONS (5)
  - Dermatitis bullous [Not Recovered/Not Resolved]
  - Generalised oedema [Not Recovered/Not Resolved]
  - Pyrexia [Not Recovered/Not Resolved]
  - Ecchymosis [Not Recovered/Not Resolved]
  - Petechiae [Not Recovered/Not Resolved]
